FAERS Safety Report 7279584-4 (Version None)
Quarter: 2011Q1

REPORT INFORMATION
  Report Type: 
  Country: None (occurrence: None)
  Receive Date: 20110203
  Receipt Date: 20110203
  Transmission Date: 20110831
  Serious: Yes (Hospitalization, Disabling, Other)
  Sender: FDA-Public Use
  Company Number: None

PATIENT

DRUGS (1)
  1. DARVOCET [Suspect]

REACTIONS (6)
  - NEOPLASM MALIGNANT [None]
  - BLOOD CHOLESTEROL INCREASED [None]
  - DIABETES MELLITUS [None]
  - HEART RATE INCREASED [None]
  - PANIC ATTACK [None]
  - CHEST PAIN [None]
